FAERS Safety Report 18951400 (Version 2)
Quarter: 2021Q2

REPORT INFORMATION
  Report Type: Report from Study
  Country: None (occurrence: US)
  Receive Date: 20210301
  Receipt Date: 20210408
  Transmission Date: 20210717
  Serious: Yes (Hospitalization, Other)
  Sender: FDA-Public Use
  Company Number: US-ABBVIE-21K-163-3792385-00

PATIENT
  Age: 72 Year
  Sex: Male
  Weight: 81.72 kg

DRUGS (4)
  1. COVID?19 VACCINE NOS. [Suspect]
     Active Substance: COVID-19 VACCINE NOS
     Dosage: 2ND DOSE
     Route: 030
     Dates: start: 202102, end: 202102
  2. HUMIRA [Suspect]
     Active Substance: ADALIMUMAB
     Indication: PSORIASIS
     Dosage: CITRATE FREE
     Route: 058
     Dates: start: 2018
  3. COVID?19 VACCINE NOS. [Suspect]
     Active Substance: COVID-19 VACCINE NOS
     Indication: COVID-19 IMMUNISATION
     Dosage: 1ST DOSE
     Route: 030
     Dates: start: 202101, end: 202101
  4. INSULIN [Concomitant]
     Active Substance: INSULIN NOS
     Indication: DIABETES MELLITUS

REACTIONS (11)
  - Pneumonia [Recovered/Resolved]
  - Malaise [Recovered/Resolved]
  - Cough [Recovered/Resolved]
  - Adverse drug reaction [Recovered/Resolved]
  - SARS-CoV-2 test positive [Recovered/Resolved]
  - Ageusia [Recovered/Resolved]
  - Pyrexia [Recovered/Resolved]
  - Asthenia [Recovered/Resolved]
  - Anosmia [Recovered/Resolved]
  - Fatigue [Not Recovered/Not Resolved]
  - Feeling abnormal [Recovered/Resolved]

NARRATIVE: CASE EVENT DATE: 202012
